FAERS Safety Report 9500194 (Version 1)
Quarter: 2013Q3

REPORT INFORMATION
  Report Type: Spontaneous
  Country: US (occurrence: US)
  Receive Date: 20130905
  Receipt Date: 20130905
  Transmission Date: 20140515
  Serious: No
  Sender: FDA-Public Use
  Company Number: US-BAYER-2013-107256

PATIENT
  Age: 59 Year
  Sex: Male
  Weight: 100 kg

DRUGS (3)
  1. ALEVE TABLET [Suspect]
     Dosage: 1 DF, PRN
     Route: 048
  2. METOPROLOL [Concomitant]
  3. HYZAAR [Concomitant]

REACTIONS (1)
  - Headache [None]
